FAERS Safety Report 4420966-3 (Version None)
Quarter: 2004Q3

REPORT INFORMATION
  Report Type: 
  Country: None (occurrence: None)
  Receive Date: 20040809
  Receipt Date: 20040802
  Transmission Date: 20050211
  Serious: Yes (Disabling, Other)
  Sender: FDA-Public Use
  Company Number: US-MERCK-0408USA00142

PATIENT
  Age: 81 Year
  Sex: Female

DRUGS (6)
  1. [THERAPY UNSPECIFIED] [Concomitant]
     Route: 065
  2. PAXIL [Concomitant]
     Route: 065
  3. ZOCOR [Suspect]
     Indication: HYPERCHOLESTEROLAEMIA
     Route: 048
  4. VERAPAMIL [Concomitant]
     Route: 065
  5. COUMADIN [Concomitant]
     Route: 065
  6. AMBIEN [Concomitant]
     Route: 065

REACTIONS (7)
  - AMNESIA [None]
  - BALANCE DISORDER [None]
  - HALLUCINATION, AUDITORY [None]
  - INSOMNIA [None]
  - MENTAL DISORDER [None]
  - PSYCHIATRIC SYMPTOM [None]
  - TINNITUS [None]
